FAERS Safety Report 18362858 (Version 2)
Quarter: 2022Q3

REPORT INFORMATION
  Report Type: Spontaneous
  Country: NL (occurrence: NL)
  Receive Date: 20201008
  Receipt Date: 20220909
  Transmission Date: 20221026
  Serious: Yes (Death, Hospitalization, Other)
  Sender: FDA-Public Use
  Company Number: None

PATIENT
  Age: 72 Year
  Sex: Male

DRUGS (2)
  1. ATORVASTATIN [Suspect]
     Active Substance: ATORVASTATIN
     Indication: Dyslipidaemia
     Dosage: UNK
     Route: 065
  2. PITAVASTATIN [Suspect]
     Active Substance: PITAVASTATIN
     Indication: Dyslipidaemia
     Dosage: UNK
     Route: 065

REACTIONS (9)
  - Immune-mediated myositis [Fatal]
  - Gait disturbance [Fatal]
  - Weight decreased [Fatal]
  - Decreased appetite [Fatal]
  - Muscular weakness [Fatal]
  - Asthenia [Fatal]
  - Myalgia [Fatal]
  - Pneumonia bacterial [Fatal]
  - Infection [Fatal]
